FAERS Safety Report 12921320 (Version 3)
Quarter: 2016Q4

REPORT INFORMATION
  Report Type: Spontaneous
  Country: IT (occurrence: IT)
  Receive Date: 20161107
  Receipt Date: 20161209
  Transmission Date: 20170207
  Serious: Yes (Death, Other)
  Sender: FDA-Public Use
  Company Number: IT-GILEAD-2016-0241935

PATIENT
  Age: 69 Year
  Sex: Male
  Weight: 47 kg

DRUGS (3)
  1. ZYDELIG [Suspect]
     Active Substance: IDELALISIB
     Indication: CHRONIC LYMPHOCYTIC LEUKAEMIA
     Dosage: 150 MG, BID
     Route: 048
     Dates: start: 20151106, end: 20160905
  2. BACTRIM [Concomitant]
     Active Substance: SULFAMETHOXAZOLE\TRIMETHOPRIM
     Indication: ANTI-INFECTIVE THERAPY
     Dosage: 2 DF, UNK
     Route: 048
     Dates: start: 20151106, end: 20160915
  3. ACICLIN [Concomitant]
     Active Substance: ACYCLOVIR
     Indication: ANTI-INFECTIVE THERAPY
     Dosage: 1200 MG, UNK
     Route: 048
     Dates: start: 20151106, end: 20160915

REACTIONS (7)
  - Respiratory arrest [Fatal]
  - General physical health deterioration [Not Recovered/Not Resolved]
  - Sepsis [Fatal]
  - Pneumonia [Fatal]
  - Mucosal infection [Unknown]
  - Dysphagia [Recovering/Resolving]
  - Asthenia [Not Recovered/Not Resolved]

NARRATIVE: CASE EVENT DATE: 20160718
